FAERS Safety Report 9691949 (Version 1)
Quarter: 2013Q4

REPORT INFORMATION
  Report Type: Spontaneous
  Country: US (occurrence: US)
  Receive Date: 20131118
  Receipt Date: 20131118
  Transmission Date: 20140711
  Serious: No
  Sender: FDA-Public Use
  Company Number: US-009507513-1311USA001226

PATIENT
  Age: 47 Year
  Sex: Female

DRUGS (4)
  1. JANUVIA [Suspect]
     Indication: TYPE 2 DIABETES MELLITUS
     Dosage: 100 MG, QD
     Route: 048
     Dates: start: 201305
  2. LEVOTHYROXINE SODIUM [Concomitant]
     Dosage: 150 MICROGRAM, UNK
  3. METFORMIN [Concomitant]
     Dosage: 1000 MG, TWICE DAILY
  4. GLIMEPIRIDE [Concomitant]

REACTIONS (2)
  - Abdominal pain upper [Not Recovered/Not Resolved]
  - Back pain [Not Recovered/Not Resolved]
